FAERS Safety Report 4698157-0 (Version None)
Quarter: 2005Q2

REPORT INFORMATION
  Report Type: 
  Country: None (occurrence: None)
  Receive Date: 20050623
  Receipt Date: 20000113
  Transmission Date: 20051028
  Serious: Yes (Hospitalization)
  Sender: FDA-Public Use
  Company Number: FR-GLAXOSMITHKLINE-B0075891A

PATIENT
  Age: 2 Day
  Sex: Male
  Weight: 3.4 kg

DRUGS (10)
  1. ZIDOVUDINE [Suspect]
     Indication: ANTIVIRAL PROPHYLAXIS
     Route: 048
  2. LAMIVUDINE [Suspect]
     Indication: ANTIVIRAL PROPHYLAXIS
     Route: 048
  3. ZIDOVUDINE [Suspect]
     Indication: HIV INFECTION
  4. LAMIVUDINE [Suspect]
     Indication: HIV INFECTION
     Route: 048
  5. SAQUINAVIR [Suspect]
     Indication: HIV INFECTION
     Route: 048
  6. COMBIVIR [Suspect]
     Indication: HUMAN IMMUNODEFICIENCY VIRUS TRANSMISSION
     Route: 048
  7. ZIDOVUDINE [Suspect]
     Route: 042
     Dates: start: 19990207, end: 19990207
  8. BACTRIM [Suspect]
     Route: 048
  9. ALBUTEROL [Concomitant]
  10. COLPOSEPTINE [Concomitant]
     Route: 067

REACTIONS (13)
  - ANAEMIA [None]
  - BLOOD KETONE BODY INCREASED [None]
  - BLOOD KETONE BODY PRESENT [None]
  - BLOOD LACTIC ACID INCREASED [None]
  - CARDIAC MURMUR [None]
  - DIFFICULTY IN WALKING [None]
  - DRUG EXPOSURE DURING PREGNANCY [None]
  - DYSPHAGIA [None]
  - HYPERTONIA [None]
  - HYPOTONIA [None]
  - LIPASE INCREASED [None]
  - NEUTROPENIA [None]
  - THROMBOCYTOPENIA [None]
